FAERS Safety Report 14583446 (Version 1)
Quarter: 2018Q1

REPORT INFORMATION
  Report Type: Spontaneous
  Country: US (occurrence: US)
  Receive Date: 20180228
  Receipt Date: 20180228
  Transmission Date: 20180509
  Serious: Yes (Other)
  Sender: FDA-Public Use
  Company Number: US-OTSUKA-DJ201306013

PATIENT

DRUGS (1)
  1. ABILIFY [Suspect]
     Active Substance: ARIPIPRAZOLE
     Route: 065
     Dates: start: 201211

REACTIONS (6)
  - Dyspnoea [Unknown]
  - Scarlet fever [Unknown]
  - Ear infection [Unknown]
  - Pneumonia [Unknown]
  - Influenza [Unknown]
  - Clostridium test positive [Unknown]
